FAERS Safety Report 17463940 (Version 1)
Quarter: 2020Q3

REPORT INFORMATION
  Report Type: Other
  Country: BR (occurrence: BR)
  Receive Date: 20200226
  Receipt Date: 20200226
  Transmission Date: 20201105
  Serious: Yes (Congenital Anomaly, Other)
  Sender: FDA-Public Use
  Company Number: BR-MACLEODS PHARMACEUTICALS US LTD-MAC2020025278

PATIENT

DRUGS (12)
  1. FERROUS SULFATE. [Suspect]
     Active Substance: FERROUS SULFATE
     Indication: PRODUCT USED FOR UNKNOWN INDICATION
     Dosage: UNK DURING FIRST, SECOND TRIMESTER
     Route: 064
  2. EFAVIRENZ. [Suspect]
     Active Substance: EFAVIRENZ
     Indication: PRODUCT USED FOR UNKNOWN INDICATION
     Dosage: 600 MG/24 HR (MG/DAY), QD, DURING FIRST TRIMESTER, PRIOR TO CONCEPTION
     Route: 064
     Dates: end: 20120611
  3. LAMIVUDINE. [Suspect]
     Active Substance: LAMIVUDINE
     Indication: PRODUCT USED FOR UNKNOWN INDICATION
     Dosage: 300 MG/24 HR (MG/DAY), QD DURING FIRST TRIMESTER
     Route: 064
     Dates: start: 20120521
  4. LEXIVA [Suspect]
     Active Substance: FOSAMPRENAVIR CALCIUM
     Indication: PRODUCT USED FOR UNKNOWN INDICATION
     Dosage: 1400 MG/24 HR (MG/DAY), QD DURING SECOND TRIMESTER
     Route: 064
     Dates: start: 20120711, end: 20120803
  5. ISENTRESS [Suspect]
     Active Substance: RALTEGRAVIR POTASSIUM
     Indication: PRODUCT USED FOR UNKNOWN INDICATION
     Dosage: 800 MG/24 HR (MG/DAY), QD DURING SECOND TRIMESTER
     Route: 064
     Dates: start: 20120803
  6. FOLATE SUPPLEMENT (FOLATE SUPPLEMENT) [Suspect]
     Active Substance: FOLATE SODIUM
     Indication: PRODUCT USED FOR UNKNOWN INDICATION
     Dosage: UNK DURING FIRST, SECOND TRIMESTER AND THIRD
     Route: 064
  7. TETANUS TOXOID ADSORBED (VACCINE) [Suspect]
     Active Substance: CLOSTRIDIUM TETANI TOXOID ANTIGEN (FORMALDEHYDE INACTIVATED)
     Indication: PRODUCT USED FOR UNKNOWN INDICATION
     Dosage: UNK DURING 3RD TRIMESTER
     Route: 064
  8. AMOXICILLIN. [Suspect]
     Active Substance: AMOXICILLIN
     Indication: PRODUCT USED FOR UNKNOWN INDICATION
     Dosage: UNK DURING 3RD TRIMESTER
     Route: 064
  9. ZIAGEN [Suspect]
     Active Substance: ABACAVIR SULFATE
     Indication: PRODUCT USED FOR UNKNOWN INDICATION
     Dosage: 600 MG/24 HR (MG/DAY), QD DURING SECOND TRIMESTER
     Route: 064
     Dates: start: 20120803
  10. LAMIVUDINE/ZIDOVUDINE [Suspect]
     Active Substance: LAMIVUDINE\ZIDOVUDINE
     Indication: PRODUCT USED FOR UNKNOWN INDICATION
     Dosage: 2 DOSAGE FORM, TAB/CAPS DURING FIRST TRIMESTER, PRIOR TO CONCEPTION
     Route: 064
     Dates: end: 20120521
  11. TRUVADA [Suspect]
     Active Substance: EMTRICITABINE\TENOFOVIR DISOPROXIL FUMARATE
     Indication: PRODUCT USED FOR UNKNOWN INDICATION
     Dosage: 1 DOSAGE FORM, TAB/CAPS, DURING FIRST TRIMESTER
     Route: 064
     Dates: start: 20120521
  12. RETROVIR [Suspect]
     Active Substance: ZIDOVUDINE
     Indication: PRODUCT USED FOR UNKNOWN INDICATION
     Dosage: 210 MG/24 HR (MG/DAY), QD DURING 3RD TRIMESTER
     Route: 064
     Dates: start: 20121128, end: 20121128

REACTIONS (3)
  - Prolapse [Unknown]
  - Diastasis recti abdominis [Unknown]
  - Foetal exposure during pregnancy [Unknown]
